FAERS Safety Report 11999040 (Version 1)
Quarter: 2016Q1

REPORT INFORMATION
  Report Type: Spontaneous
  Country: US (occurrence: None)
  Receive Date: 20160203
  Receipt Date: 20160203
  Transmission Date: 20160526
  Serious: No
  Sender: FDA-Public Use
  Company Number: None

PATIENT
  Age: 86 Year
  Sex: Female

DRUGS (8)
  1. VALSARTAN. [Suspect]
     Active Substance: VALSARTAN
     Indication: HYPERTENSION
     Dosage: 160 MG 1 TAB DAILY ONCE DAILY MOUTH
     Route: 048
     Dates: start: 20150416, end: 20150421
  2. LISINOPRIL. [Concomitant]
     Active Substance: LISINOPRIL
  3. MULTIVIT [Concomitant]
     Active Substance: VITAMINS
  4. VITAMIN B12 [Concomitant]
     Active Substance: CYANOCOBALAMIN
  5. CINNAMON. [Concomitant]
     Active Substance: CINNAMON
  6. HYDROCHLORITHIAZIDE [Concomitant]
     Active Substance: HYDROCHLOROTHIAZIDE
  7. COENZYME Q10 [Concomitant]
     Active Substance: UBIDECARENONE
  8. FISH OIL [Concomitant]
     Active Substance: FISH OIL

REACTIONS (7)
  - Balance disorder [None]
  - Impaired work ability [None]
  - Dizziness [None]
  - Economic problem [None]
  - Cough [None]
  - Dysphonia [None]
  - Product substitution issue [None]

NARRATIVE: CASE EVENT DATE: 20150416
